FAERS Safety Report 7623842-8 (Version None)
Quarter: 2011Q3

REPORT INFORMATION
  Report Type: 
  Country: None (occurrence: None)
  Receive Date: 20110720
  Receipt Date: 20110714
  Transmission Date: 20111222
  Serious: Yes (Other)
  Sender: FDA-Public Use
  Company Number: US-PFIZER INC-2011099033

PATIENT
  Sex: Female

DRUGS (8)
  1. MORPHINE [Concomitant]
     Indication: PAIN
     Dosage: UNK
     Dates: start: 19990101, end: 20110101
  2. HYDROCODONE [Concomitant]
     Indication: PAIN
     Dosage: UNK
     Dates: start: 19990101
  3. MS CONTIN [Concomitant]
     Indication: PAIN
     Dosage: UNK
     Dates: start: 19990101
  4. METOPROLOL [Concomitant]
     Indication: ARRHYTHMIA
     Dosage: UNK
     Dates: start: 20060101, end: 20110101
  5. LORAZEPAM [Concomitant]
     Indication: PAIN
     Dosage: UNK
     Dates: start: 19990101
  6. IBUPROFEN [Concomitant]
     Indication: PAIN
     Dosage: UNK
     Dates: start: 19990101
  7. CHANTIX [Suspect]
     Indication: SMOKING CESSATION THERAPY
     Dosage: UNK
     Dates: start: 20080301, end: 20080801
  8. TOPAMAX [Concomitant]
     Indication: CONVULSION
     Dosage: UNK
     Dates: start: 20010101

REACTIONS (7)
  - DISSOCIATIVE IDENTITY DISORDER [None]
  - ABNORMAL DREAMS [None]
  - AGORAPHOBIA [None]
  - SUICIDAL BEHAVIOUR [None]
  - ANXIETY [None]
  - ANGER [None]
  - DEPRESSION [None]
